FAERS Safety Report 12925116 (Version 2)
Quarter: 2016Q4

REPORT INFORMATION
  Report Type: Report from Study
  Country: None (occurrence: US)
  Receive Date: 20161108
  Receipt Date: 20161221
  Transmission Date: 20170207
  Serious: Yes (Death, Hospitalization, Other)
  Sender: FDA-Public Use
  Company Number: US-ABBVIE-16P-163-1775771-00

PATIENT
  Age: 59 Year
  Sex: Male

DRUGS (4)
  1. VIEKIRA PAK [Suspect]
     Active Substance: DASABUVIR\OMBITASVIR\PARITAPREVIR\RITONAVIR
     Indication: CHRONIC HEPATITIS C
     Route: 048
     Dates: start: 20161017, end: 20161106
  2. MODERIBA [Suspect]
     Active Substance: RIBAVIRIN
     Indication: CHRONIC HEPATITIS C
     Route: 048
     Dates: start: 20161007, end: 20161106
  3. LOSARTAN. [Concomitant]
     Active Substance: LOSARTAN
     Indication: PRODUCT USED FOR UNKNOWN INDICATION
     Route: 065
     Dates: start: 20160607
  4. TACROLIMUS. [Concomitant]
     Active Substance: TACROLIMUS
     Indication: LIVER TRANSPLANT
     Route: 065
     Dates: start: 201206, end: 201610

REACTIONS (5)
  - Acute kidney injury [Unknown]
  - Hyperkalaemia [Unknown]
  - Cardiac arrest [Fatal]
  - Dehydration [Unknown]
  - Hepatic failure [Unknown]

NARRATIVE: CASE EVENT DATE: 20161104
